FAERS Safety Report 4605907-8 (Version None)
Quarter: 2005Q1

REPORT INFORMATION
  Report Type: 
  Country: None (occurrence: None)
  Receive Date: 20050311
  Receipt Date: 20050308
  Transmission Date: 20050727
  Serious: Yes (Other)
  Sender: FDA-Public Use
  Company Number: US-JNJFOC-20050302201

PATIENT
  Sex: Female
  Weight: 88.45 kg

DRUGS (1)
  1. LEVAQUIN [Suspect]
     Indication: SINUSITIS

REACTIONS (2)
  - DIABETES MELLITUS INSULIN-DEPENDENT [None]
  - HEADACHE [None]
